FAERS Safety Report 11801666 (Version 1)
Quarter: 2015Q4

REPORT INFORMATION
  Report Type: Spontaneous
  Country: US (occurrence: US)
  Receive Date: 20151204
  Receipt Date: 20151204
  Transmission Date: 20160305
  Serious: No
  Sender: FDA-Public Use
  Company Number: US-JNJFOC-20151024227

PATIENT
  Age: 77 Year
  Sex: Male
  Weight: 77.11 kg

DRUGS (3)
  1. NIZORAL A-D [Suspect]
     Active Substance: KETOCONAZOLE
     Route: 061
  2. NIZORAL A-D [Suspect]
     Active Substance: KETOCONAZOLE
     Indication: SEBORRHOEIC DERMATITIS
     Dosage: NICKEL SIZE DROP ONCE EVERY 3-4 DAYS.
     Route: 061
  3. PYRITHIONE ZINC. [Concomitant]
     Active Substance: PYRITHIONE ZINC
     Indication: SEBORRHOEIC DERMATITIS
     Route: 061

REACTIONS (4)
  - Skin disorder [Not Recovered/Not Resolved]
  - Intentional product use issue [Unknown]
  - Skin irritation [Unknown]
  - Skin exfoliation [Unknown]
